FAERS Safety Report 18553435 (Version 6)
Quarter: 2023Q4

REPORT INFORMATION
  Report Type: Spontaneous
  Country: JP (occurrence: JP)
  Receive Date: 20201127
  Receipt Date: 20231220
  Transmission Date: 20240110
  Serious: Yes (Other)
  Sender: FDA-Public Use
  Company Number: JP-ONO-2020JP028635

PATIENT
  Age: 72 Year
  Sex: Male
  Weight: 68 kg

DRUGS (7)
  1. ENCORAFENIB [Suspect]
     Active Substance: ENCORAFENIB
     Indication: Malignant melanoma
     Dosage: 300 MG, EVERYDAY
     Route: 048
     Dates: start: 20201019, end: 20201021
  2. BINIMETINIB [Suspect]
     Active Substance: BINIMETINIB
     Indication: Malignant melanoma
     Dosage: 30 MG, Q12H
     Route: 048
     Dates: start: 20201019, end: 20201021
  3. VEMURAFENIB [Suspect]
     Active Substance: VEMURAFENIB
     Indication: Malignant melanoma
     Dosage: UNK
     Route: 065
  4. VEMURAFENIB [Suspect]
     Active Substance: VEMURAFENIB
     Indication: Metastases to central nervous system
  5. CORTRIL [Concomitant]
     Active Substance: HYDROCORTISONE
     Dosage: UNK
     Route: 048
     Dates: start: 20200226
  6. NIFEDIPINE [Concomitant]
     Active Substance: NIFEDIPINE
     Dosage: UNK
     Route: 048
  7. FLUNITRAZEPAM [Concomitant]
     Active Substance: FLUNITRAZEPAM
     Dosage: UNK
     Route: 048

REACTIONS (1)
  - Pancreatitis [Unknown]
